FAERS Safety Report 6104165-5 (Version None)
Quarter: 2009Q1

REPORT INFORMATION
  Report Type: 
  Country: None (occurrence: None)
  Receive Date: 20090305
  Receipt Date: 20090220
  Transmission Date: 20090719
  Serious: Yes (Death, Life-Threatening, Other)
  Sender: FDA-Public Use
  Company Number: CN-PFIZER INC-2009174464

PATIENT

DRUGS (3)
  1. FLUCONAZOLE [Suspect]
     Indication: ONYCHOMYCOSIS
     Dosage: 100 MG, UNK
     Route: 048
     Dates: start: 20050611, end: 20050611
  2. BENAZEPRIL HYDROCHLORIDE [Concomitant]
  3. AMLODIPINE [Concomitant]

REACTIONS (3)
  - RENAL FAILURE [None]
  - SEPTIC SHOCK [None]
  - STEVENS-JOHNSON SYNDROME [None]
